FAERS Safety Report 5357672-7 (Version None)
Quarter: 2007Q2

REPORT INFORMATION
  Report Type: 
  Country: None (occurrence: None)
  Receive Date: 20070614
  Receipt Date: 20070605
  Transmission Date: 20071010
  Serious: Yes (Other)
  Sender: FDA-Public Use
  Company Number: BR-PFIZER INC-2007045202

PATIENT
  Sex: Male
  Weight: 63 kg

DRUGS (3)
  1. DETRUSITOL LA [Suspect]
     Indication: URINARY INCONTINENCE
     Route: 048
     Dates: start: 20070309, end: 20070312
  2. INDAPAMIDE [Concomitant]
     Route: 048
  3. AMLODIPINE [Concomitant]
     Route: 048

REACTIONS (1)
  - URINARY TRACT OBSTRUCTION [None]
